FAERS Safety Report 7809059-2 (Version None)
Quarter: 2011Q4

REPORT INFORMATION
  Report Type: 
  Country: None (occurrence: None)
  Receive Date: 20111012
  Receipt Date: 20111004
  Transmission Date: 20120403
  Serious: Yes (Hospitalization)
  Sender: FDA-Public Use
  Company Number: ES-JNJFOC-20111002658

PATIENT
  Age: 57 Year
  Sex: Female

DRUGS (6)
  1. TOPAMAX [Suspect]
     Indication: BIPOLAR DISORDER
     Route: 048
     Dates: start: 20090101, end: 20110821
  2. RISPERIDONE [Suspect]
     Indication: BIPOLAR DISORDER
     Route: 065
     Dates: start: 20090101, end: 20110821
  3. HALOPERIDOL [Suspect]
     Indication: BIPOLAR DISORDER
     Route: 065
     Dates: start: 20090101, end: 20110821
  4. FENOFIBRATE [Concomitant]
     Indication: HYPERLIPIDAEMIA
     Route: 048
     Dates: start: 20100730, end: 20110821
  5. METFORMIN HCL [Concomitant]
     Indication: DIABETES MELLITUS
     Route: 048
     Dates: start: 20100730, end: 20110821
  6. SINOGAN [Suspect]
     Indication: BIPOLAR DISORDER
     Route: 048
     Dates: start: 20090101, end: 20110821

REACTIONS (4)
  - NEUROLEPTIC MALIGNANT SYNDROME [None]
  - HYPERTHERMIA [None]
  - OFF LABEL USE [None]
  - DISORIENTATION [None]
